FAERS Safety Report 15433658 (Version 2)
Quarter: 2018Q4

REPORT INFORMATION
  Report Type: Spontaneous
  Country: US (occurrence: US)
  Receive Date: 20180927
  Receipt Date: 20181011
  Transmission Date: 20190204
  Serious: No
  Sender: FDA-Public Use
  Company Number: US-B.I. PHARMACEUTICALS,INC./RIDGEFIELD-2018-BI-047129

PATIENT
  Sex: Male

DRUGS (10)
  1. SPIRIVA [Suspect]
     Active Substance: TIOTROPIUM BROMIDE MONOHYDRATE
     Indication: BRONCHITIS CHRONIC
     Dosage: 1 CAP DAILY;  FORM STRENGTH: 18 MCG; CAPSULE? ADMINISTRATION NO ?ACTION(S) TAKEN DOSE NOT CHANGED
     Route: 055
     Dates: start: 2018
  2. DULERA [Concomitant]
     Active Substance: FORMOTEROL FUMARATE DIHYDRATE\MOMETASONE FUROATE
     Indication: CHRONIC OBSTRUCTIVE PULMONARY DISEASE
     Dosage: 2 PUFFS TWICE A DAY;  FORMULATION: INHALATION AEROSOL;
     Route: 055
  3. ELIQUIS [Concomitant]
     Active Substance: APIXABAN
     Indication: ATRIAL FIBRILLATION
     Dosage: TWICE DAILY;  FORM STRENGTH: 5 MG; FORMULATION: TABLET
     Route: 048
  4. DILTIAZEM. [Concomitant]
     Active Substance: DILTIAZEM
     Indication: ATRIAL FIBRILLATION
     Dosage: ONCE DAILY;  FORM STRENGTH: 180 MG; FORMULATION: CAPLET
     Route: 048
  5. LOSARTAN AND HYDROCHLOROTHIAZIDE [Concomitant]
     Active Substance: HYDROCHLOROTHIAZIDE\LOSARTAN POTASSIUM
     Indication: HYPERTENSION
     Dosage: HALF TAB DAILY;  FORM STRENGTH: 12.5 MG; FORMULATION: TABLET
     Route: 048
  6. CARVEDILOL. [Concomitant]
     Active Substance: CARVEDILOL
     Indication: HEART RATE DECREASED
     Dosage: HALF TAB IN AM HALF TAB IN PM;  FORM STRENGTH: 12.5 MG; FORMULATION: TABLET
     Route: 048
  7. PROAIR HFA [Concomitant]
     Active Substance: ALBUTEROL SULFATE
     Indication: CHRONIC OBSTRUCTIVE PULMONARY DISEASE
     Dosage: TWICE A DAY OR AS NEEDED;  FORMULATION: INHALATION AEROSOL;
     Route: 055
  8. PANTOPRAZOLE [Concomitant]
     Active Substance: PANTOPRAZOLE
     Indication: GASTROOESOPHAGEAL REFLUX DISEASE
     Dosage: ONCE DAILY;  FORM STRENGTH: 40 MG; FORMULATION: TABLET
     Route: 048
  9. SPIRIVA [Suspect]
     Active Substance: TIOTROPIUM BROMIDE MONOHYDRATE
     Indication: EMPHYSEMA
  10. CHLORDIAZEPOXIDE-CLIDINIUM [Concomitant]
     Active Substance: CHLORDIAZEPOXIDE\CLIDINIUM
     Indication: DRUG THERAPY
     Route: 065

REACTIONS (3)
  - Intentional overdose [Recovered/Resolved]
  - Drug ineffective [Unknown]
  - Product quality issue [Unknown]

NARRATIVE: CASE EVENT DATE: 2018
